FAERS Safety Report 14692879 (Version 3)
Quarter: 2018Q2

REPORT INFORMATION
  Report Type: Spontaneous
  Country: FI (occurrence: FI)
  Receive Date: 20180329
  Receipt Date: 20180626
  Transmission Date: 20180711
  Serious: Yes (Life-Threatening, Hospitalization)
  Sender: FDA-Public Use
  Company Number: FI-MYLANLABS-2018M1020005

PATIENT
  Age: 31 Year
  Sex: Female

DRUGS (6)
  1. EPIPEN [Suspect]
     Active Substance: EPINEPHRINE
     Indication: SWELLING
  2. EPIPEN [Suspect]
     Active Substance: EPINEPHRINE
     Indication: DYSPNOEA
  3. EPIPEN [Suspect]
     Active Substance: EPINEPHRINE
     Indication: RASH
     Dosage: 300 ?G, UNK
     Dates: start: 20180303, end: 20180303
  4. EPIPEN [Suspect]
     Active Substance: EPINEPHRINE
     Indication: CHILLS
  5. EPIPEN [Suspect]
     Active Substance: EPINEPHRINE
     Indication: ANAPHYLACTIC REACTION
     Dosage: 300 ?G, UNK
     Route: 030
     Dates: start: 20180303, end: 20180303
  6. EPIPEN [Suspect]
     Active Substance: EPINEPHRINE
     Indication: PYREXIA

REACTIONS (3)
  - Device failure [Unknown]
  - Condition aggravated [Recovered/Resolved]
  - Wrong technique in product usage process [Unknown]

NARRATIVE: CASE EVENT DATE: 201803
